FAERS Safety Report 23342436 (Version 1)
Quarter: 2023Q4

REPORT INFORMATION
  Report Type: Spontaneous
  Country: US (occurrence: US)
  Receive Date: 20231227
  Receipt Date: 20231227
  Transmission Date: 20240109
  Serious: Yes (Hospitalization, Disabling, Other)
  Sender: FDA-Public Use
  Company Number: US-BIOVITRUM-2023-US-021139

PATIENT
  Age: 51 Year
  Sex: Male

DRUGS (1)
  1. KINERET [Suspect]
     Active Substance: ANAKINRA
     Indication: Product used for unknown indication

REACTIONS (4)
  - Myalgia [Unknown]
  - Condition aggravated [Unknown]
  - Drug ineffective [Unknown]
  - Movement disorder [Unknown]
